FAERS Safety Report 19025247 (Version 16)
Quarter: 2023Q1

REPORT INFORMATION
  Report Type: Report from Study
  Country: US (occurrence: US)
  Receive Date: 20210318
  Receipt Date: 20230114
  Transmission Date: 20230417
  Serious: Yes (Other)
  Sender: FDA-Public Use
  Company Number: US-NOVARTISPH-NVSC2021US055247

PATIENT
  Age: 87 Year
  Sex: Female

DRUGS (2)
  1. ENTRESTO [Suspect]
     Active Substance: SACUBITRIL\VALSARTAN
     Indication: Cardiac failure chronic
     Dosage: UNK UNK, BID
     Route: 048
     Dates: start: 20210308
  2. ASPIRIN [Suspect]
     Active Substance: ASPIRIN
     Indication: Product used for unknown indication
     Dosage: UNK
     Route: 065

REACTIONS (14)
  - Myocardial infarction [Unknown]
  - Traumatic lung injury [Unknown]
  - Dyspnoea [Not Recovered/Not Resolved]
  - Renal disorder [Recovering/Resolving]
  - Abdominal discomfort [Unknown]
  - Flatulence [Unknown]
  - Anxiety [Unknown]
  - Skin disorder [Unknown]
  - Arthritis [Unknown]
  - Confusional state [Unknown]
  - Memory impairment [Unknown]
  - Lung disorder [Unknown]
  - Eye disorder [Unknown]
  - Dizziness [Recovering/Resolving]

NARRATIVE: CASE EVENT DATE: 20220101
